FAERS Safety Report 9318699 (Version 1)
Quarter: 2013Q2

REPORT INFORMATION
  Report Type: Spontaneous
  Country: BR (occurrence: None)
  Receive Date: 20130523
  Receipt Date: 20130523
  Transmission Date: 20140414
  Serious: Yes (Other)
  Sender: FDA-Public Use
  Company Number: BR-1198229

PATIENT
  Age: 28 Year
  Sex: Male
  Weight: 83 kg

DRUGS (1)
  1. MYDRIACYL 1 [Suspect]
     Indication: OPHTHALMOLOGICAL EXAMINATION
     Route: 047
     Dates: start: 20130417, end: 20130417

REACTIONS (4)
  - Convulsion [None]
  - Ligament rupture [None]
  - Loss of consciousness [None]
  - Hallucination [None]
